FAERS Safety Report 16176426 (Version 1)
Quarter: 2019Q2

REPORT INFORMATION
  Report Type: Spontaneous
  Country: NL (occurrence: NL)
  Receive Date: 20190409
  Receipt Date: 20190409
  Transmission Date: 20190711
  Serious: Yes (Other)
  Sender: FDA-Public Use
  Company Number: NL-PFIZER INC-2019143814

PATIENT
  Sex: Male

DRUGS (8)
  1. PREGABALIN. [Suspect]
     Active Substance: PREGABALIN
     Indication: NERVE INJURY
     Dosage: UNK UNK, 2X/DAY
     Route: 065
  2. PARACETAMOL [Suspect]
     Active Substance: ACETAMINOPHEN
     Indication: LIMB INJURY
     Dosage: UNK
     Route: 065
  3. AMITRIPTYLINE [Suspect]
     Active Substance: AMITRIPTYLINE
     Indication: NERVE INJURY
     Route: 065
  4. AMITRIPTYLINE [Suspect]
     Active Substance: AMITRIPTYLINE
     Indication: LIMB INJURY
  5. PREDNISONE. [Suspect]
     Active Substance: PREDNISONE
     Indication: NERVE INJURY
  6. PREGABALIN. [Suspect]
     Active Substance: PREGABALIN
     Indication: LIMB INJURY
  7. PARACETAMOL [Suspect]
     Active Substance: ACETAMINOPHEN
     Indication: NERVE INJURY
  8. PREDNISONE. [Suspect]
     Active Substance: PREDNISONE
     Indication: LIMB INJURY
     Dosage: UNK
     Route: 065

REACTIONS (7)
  - Colour blindness acquired [Not Recovered/Not Resolved]
  - Visual impairment [Not Recovered/Not Resolved]
  - Eye disorder [Unknown]
  - Blindness transient [Unknown]
  - Astigmatism [Not Recovered/Not Resolved]
  - Vision blurred [Unknown]
  - Eye irritation [Unknown]
